FAERS Safety Report 25421383 (Version 2)
Quarter: 2025Q2

REPORT INFORMATION
  Report Type: Spontaneous
  Country: AR (occurrence: AR)
  Receive Date: 20250611
  Receipt Date: 20250617
  Transmission Date: 20250717
  Serious: Yes (Hospitalization, Other)
  Sender: ALEXION PHARMACEUTICALS
  Company Number: AR-ASTRAZENECA-202506SAM007018AR

PATIENT
  Age: 20 Day

DRUGS (1)
  1. SOLIRIS [Suspect]
     Active Substance: ECULIZUMAB
     Indication: Myasthenia gravis
     Dosage: 1200 MILLIGRAM, QD

REACTIONS (3)
  - Hypotonia neonatal [Recovering/Resolving]
  - Foetal exposure during pregnancy [Recovering/Resolving]
  - Myasthenia gravis neonatal [Recovering/Resolving]
